FAERS Safety Report 5128665-X (Version None)
Quarter: 2006Q4

REPORT INFORMATION
  Report Type: 
  Country: None (occurrence: None)
  Receive Date: 20061017
  Receipt Date: 20060817
  Transmission Date: 20070319
  Serious: Yes (Death, Hospitalization)
  Sender: FDA-Public Use
  Company Number: US-ROCHE-460105

PATIENT
  Age: 50 Year
  Sex: Male
  Weight: 80.3 kg

DRUGS (9)
  1. CELLCEPT [Suspect]
     Indication: PROPHYLAXIS AGAINST TRANSPLANT REJECTION
     Route: 048
     Dates: start: 20040611, end: 20060709
  2. LISINOPRIL [Concomitant]
  3. MAGNESIUM [Concomitant]
  4. CELEXA [Concomitant]
  5. NORVASC [Concomitant]
  6. PROGRAF [Concomitant]
  7. BACTRIM [Concomitant]
  8. LIPITOR [Concomitant]
  9. PROTONIX [Concomitant]

REACTIONS (2)
  - TRANSPLANT REJECTION [None]
  - TREATMENT NONCOMPLIANCE [None]
